APPROVED DRUG PRODUCT: DIOVAN HCT
Active Ingredient: HYDROCHLOROTHIAZIDE; VALSARTAN
Strength: 25MG;320MG
Dosage Form/Route: TABLET;ORAL
Application: N020818 | Product #005 | TE Code: AB
Applicant: NOVARTIS PHARMACEUTICALS CORP
Approved: Apr 28, 2006 | RLD: Yes | RS: Yes | Type: RX